FAERS Safety Report 25845469 (Version 1)
Quarter: 2025Q3

REPORT INFORMATION
  Report Type: Spontaneous
  Country: US (occurrence: US)
  Receive Date: 20250925
  Receipt Date: 20250925
  Transmission Date: 20251021
  Serious: No
  Sender: LYNE LABORATORIES
  Company Number: US-Lyne Laboratories Inc.-2185269

PATIENT
  Age: 2 Month
  Sex: Female

DRUGS (7)
  1. NYSTATIN [Suspect]
     Active Substance: NYSTATIN
     Indication: Rash
  2. CLOTRIMAZOLE [Concomitant]
     Active Substance: CLOTRIMAZOLE
  3. CALMOSEPTINE [Concomitant]
     Active Substance: MENTHOL\ZINC OXIDE
  4. Cornstarch [Concomitant]
  5. DIAPER RASH CREAM [Concomitant]
     Active Substance: ZINC OXIDE
  6. AQUAPHOR [Concomitant]
     Active Substance: PETROLATUM
  7. BABY POWDER [Concomitant]
     Active Substance: ZINC OXIDE

REACTIONS (1)
  - Drug ineffective for unapproved indication [Unknown]
